FAERS Safety Report 11917383 (Version 2)
Quarter: 2016Q1

REPORT INFORMATION
  Report Type: Report from Study
  Country: US (occurrence: US)
  Receive Date: 20160114
  Receipt Date: 20160308
  Transmission Date: 20160526
  Serious: Yes (Hospitalization, Other)
  Sender: FDA-Public Use
  Company Number: US-ABBVIE-16K-163-1535756-00

PATIENT
  Age: 62 Year
  Sex: Female

DRUGS (1)
  1. HUMIRA [Suspect]
     Active Substance: ADALIMUMAB
     Indication: RHEUMATOID ARTHRITIS
     Route: 058
     Dates: start: 2015, end: 201510

REACTIONS (7)
  - Breast discharge [Recovered/Resolved]
  - Benign breast neoplasm [Recovered/Resolved]
  - Musculoskeletal stiffness [Unknown]
  - Incision site pain [Unknown]
  - Anaesthetic complication neurological [Recovered/Resolved]
  - Pain [Unknown]
  - Muscle spasms [Recovered/Resolved]

NARRATIVE: CASE EVENT DATE: 201505
